FAERS Safety Report 5225532-8 (Version None)
Quarter: 2007Q1

REPORT INFORMATION
  Report Type: 
  Country: None (occurrence: None)
  Receive Date: 20070131
  Receipt Date: 20070122
  Transmission Date: 20070707
  Serious: Yes (Hospitalization)
  Sender: FDA-Public Use
  Company Number: GB-PFIZER INC-2007006163

PATIENT
  Age: 39 Year
  Sex: Female

DRUGS (7)
  1. MISOPROSTOL [Suspect]
  2. MISOPROSTOL [Suspect]
     Route: 048
  3. OXYTOCIN [Suspect]
     Route: 042
  4. GEMEPROST [Suspect]
  5. MIFEPRISTONE [Suspect]
  6. NIMODIPINE [Concomitant]
     Route: 048
  7. RISPERDAL [Concomitant]

REACTIONS (1)
  - UTERINE RUPTURE [None]
